FAERS Safety Report 16940776 (Version 1)
Quarter: 2019Q4

REPORT INFORMATION
  Report Type: Spontaneous
  Country: FR (occurrence: FR)
  Receive Date: 20191021
  Receipt Date: 20191021
  Transmission Date: 20200122
  Serious: Yes (Hospitalization)
  Sender: FDA-Public Use
  Company Number: FR-MYLANLABS-2019M1098243

PATIENT
  Age: 82 Year
  Sex: Male

DRUGS (3)
  1. ALLOPURINOL. [Suspect]
     Active Substance: ALLOPURINOL
     Indication: AGE-RELATED MACULAR DEGENERATION
     Dosage: ONE DROP
     Route: 065
  2. PREVISCAN                          /00789001/ [Interacting]
     Active Substance: FLUINDIONE
     Indication: ATRIAL FIBRILLATION
     Route: 065
  3. PREVISCAN                          /00789001/ [Interacting]
     Active Substance: FLUINDIONE
     Indication: ARRHYTHMIA

REACTIONS (7)
  - Retinal haemorrhage [Recovering/Resolving]
  - Subcutaneous haematoma [Unknown]
  - Drug interaction [Recovering/Resolving]
  - Overdose [Recovering/Resolving]
  - Subretinal haematoma [Recovering/Resolving]
  - Retinal detachment [Unknown]
  - Blindness unilateral [Unknown]
